FAERS Safety Report 7300858-2 (Version None)
Quarter: 2011Q1

REPORT INFORMATION
  Report Type: 
  Country: None (occurrence: None)
  Receive Date: 20110218
  Receipt Date: 20110208
  Transmission Date: 20110831
  Serious: Yes (Other)
  Sender: FDA-Public Use
  Company Number: PHHY2010US66504

PATIENT
  Sex: Female
  Weight: 164 kg

DRUGS (2)
  1. TAXOL [Concomitant]
     Dosage: 80 MG/WEEKLY
     Dates: start: 20090401
  2. ZOMETA [Suspect]
     Indication: METASTASES TO BONE
     Dosage: 4 MG, QMO
     Route: 042
     Dates: start: 20061101, end: 20100501

REACTIONS (1)
  - OSTEONECROSIS OF JAW [None]
